FAERS Safety Report 5849427-1 (Version None)
Quarter: 2008Q3

REPORT INFORMATION
  Report Type: 
  Country: None (occurrence: None)
  Receive Date: 20080815
  Receipt Date: 20080807
  Transmission Date: 20090109
  Serious: Yes (Other)
  Sender: FDA-Public Use
  Company Number: STI-2008-02585

PATIENT
  Age: 40 Year

DRUGS (5)
  1. CLINDAMYCIN HCL [Suspect]
     Dates: start: 20080721
  2. PRIMAQUINE [Suspect]
     Dates: start: 20080721
  3. BACTRIM [Suspect]
     Indication: ANTIFUNGAL PROPHYLAXIS
     Dosage: INTRAVENOUS
     Route: 042
     Dates: start: 20080716, end: 20080721
  4. ACYCLOVIR [Concomitant]
  5. ACETAMINOPHEN [Concomitant]

REACTIONS (4)
  - ALANINE AMINOTRANSFERASE INCREASED [None]
  - BLOOD ALKALINE PHOSPHATASE INCREASED [None]
  - PLATELET COUNT DECREASED [None]
  - RASH [None]
